FAERS Safety Report 14436895 (Version 1)
Quarter: 2018Q1

REPORT INFORMATION
  Report Type: Spontaneous
  Country: US (occurrence: US)
  Receive Date: 20180125
  Receipt Date: 20180125
  Transmission Date: 20180509
  Serious: No
  Sender: FDA-Public Use
  Company Number: None

PATIENT
  Sex: Male
  Weight: 132 kg

DRUGS (1)
  1. RASUVO [Suspect]
     Active Substance: METHOTREXATE SODIUM
     Indication: OVERLAP SYNDROME
     Dosage: 25 MG (0.5ML) Q WEEKLY SUBQ
     Route: 058
     Dates: start: 201801

REACTIONS (1)
  - Product use issue [None]
